FAERS Safety Report 7906584-0 (Version None)
Quarter: 2011Q4

REPORT INFORMATION
  Report Type: 
  Country: None (occurrence: None)
  Receive Date: 20111110
  Receipt Date: 20111104
  Transmission Date: 20120403
  Serious: Yes (Death, Hospitalization)
  Sender: FDA-Public Use
  Company Number: US-SANOFI-AVENTIS-2011SA073458

PATIENT
  Age: 75 Year
  Sex: Male
  Weight: 92.52 kg

DRUGS (12)
  1. COMPAZINE [Concomitant]
     Dates: start: 20110809
  2. DOCETAXEL [Suspect]
     Route: 042
     Dates: start: 20110804, end: 20110804
  3. DIGOXIN [Concomitant]
     Dates: start: 20110813
  4. KLOR-CON [Concomitant]
  5. CHLORPROMAZINE [Concomitant]
  6. DEXAMETHASONE [Concomitant]
     Dates: start: 20110803
  7. VICODIN [Concomitant]
  8. OXYCODONE HCL [Concomitant]
     Dates: start: 20110808
  9. SIMVASTATIN [Concomitant]
  10. ISOSORBIDE MONONITRATE [Concomitant]
  11. FUROSEMIDE [Concomitant]
  12. METOPROLOL [Concomitant]
     Dates: start: 20110813

REACTIONS (2)
  - FALL [None]
  - CARDIO-RESPIRATORY ARREST [None]
